FAERS Safety Report 9773565 (Version 1)
Quarter: 2013Q4

REPORT INFORMATION
  Report Type: Spontaneous
  Country: ES (occurrence: ES)
  Receive Date: 20131219
  Receipt Date: 20131219
  Transmission Date: 20140711
  Serious: Yes (Other)
  Sender: FDA-Public Use
  Company Number: ES-GILEAD-2013-0090218

PATIENT
  Age: 87 Year
  Sex: Female

DRUGS (2)
  1. RANOLAZINE [Suspect]
     Indication: ANGINA PECTORIS
     Dosage: 375 MG, BID
     Route: 048
     Dates: start: 20131010, end: 20131025
  2. CARVEDILOL [Interacting]
     Indication: HYPERTENSION
     Dosage: 12.5 MG, BID
     Route: 048
     Dates: start: 20130817, end: 20131025

REACTIONS (3)
  - Sinus arrest [Recovered/Resolved]
  - Bradyarrhythmia [Recovered/Resolved]
  - Drug interaction [Recovered/Resolved]
